FAERS Safety Report 4783465-5 (Version None)
Quarter: 2005Q3

REPORT INFORMATION
  Report Type: 
  Country: None (occurrence: None)
  Receive Date: 20050928
  Receipt Date: 20050928
  Transmission Date: 20060218
  Serious: Yes (Hospitalization)
  Sender: FDA-Public Use
  Company Number: None

PATIENT
  Age: 67 Year
  Sex: Male
  Weight: 59.8748 kg

DRUGS (9)
  1. LITHIUM 300MG [Suspect]
     Indication: SCHIZOAFFECTIVE DISORDER
     Dosage: 300MG QAM, 600MG QBEDTIME QAM, QBEDTIM PO
     Route: 048
     Dates: start: 20050518, end: 20050708
  2. ALBUTEROL/IPRATROP [Concomitant]
  3. ASPIRIN [Concomitant]
  4. BENZTROPINE MESYLATE [Concomitant]
  5. GLYBURIDE [Concomitant]
  6. LISINOPRIL [Concomitant]
  7. METFORMIN HCL [Concomitant]
  8. METOPROLOL TARTRATE [Concomitant]
  9. RISPERIDONE [Concomitant]

REACTIONS (8)
  - DIFFICULTY IN WALKING [None]
  - DYSARTHRIA [None]
  - DYSKINESIA [None]
  - DYSTONIA [None]
  - GAIT DISTURBANCE [None]
  - OPISTHOTONUS [None]
  - THERAPEUTIC AGENT TOXICITY [None]
  - TREMOR [None]
